FAERS Safety Report 7876432-6 (Version None)
Quarter: 2011Q4

REPORT INFORMATION
  Report Type: 
  Country: None (occurrence: None)
  Receive Date: 20111031
  Receipt Date: 20111024
  Transmission Date: 20120403
  Serious: Yes (Other)
  Sender: FDA-Public Use
  Company Number: PHHY2011BR94086

PATIENT
  Sex: Female

DRUGS (3)
  1. TRILEPTAL [Suspect]
     Dosage: 300 MG, UNK
     Route: 048
  2. PHENOBARBITAL TAB [Concomitant]
  3. TRILEPTAL [Suspect]
     Dosage: 2 DF, UNK
     Route: 048

REACTIONS (1)
  - BRAIN NEOPLASM [None]
